FAERS Safety Report 11396449 (Version 2)
Quarter: 2015Q4

REPORT INFORMATION
  Report Type: Spontaneous
  Country: US (occurrence: US)
  Receive Date: 20150819
  Receipt Date: 20151111
  Transmission Date: 20160304
  Serious: Yes (Hospitalization)
  Sender: FDA-Public Use
  Company Number: US-JNJFOC-20150804622

PATIENT
  Age: 63 Year
  Sex: Male

DRUGS (8)
  1. GLIPIZIDE. [Concomitant]
     Active Substance: GLIPIZIDE
     Route: 065
  2. LISINOPRIL. [Concomitant]
     Active Substance: LISINOPRIL
     Route: 065
  3. METOPROLOL [Concomitant]
     Active Substance: METOPROLOL
     Route: 065
  4. XARELTO [Suspect]
     Active Substance: RIVAROXABAN
     Indication: THROMBOSIS PROPHYLAXIS
     Route: 048
     Dates: start: 20131119, end: 20140211
  5. XARELTO [Suspect]
     Active Substance: RIVAROXABAN
     Indication: CEREBROVASCULAR ACCIDENT PROPHYLAXIS
     Route: 048
     Dates: start: 20131119, end: 20140211
  6. OXYCODONE [Concomitant]
     Active Substance: OXYCODONE
     Route: 065
  7. SOLATOL [Concomitant]
     Route: 065
  8. XARELTO [Suspect]
     Active Substance: RIVAROXABAN
     Indication: ATRIAL FIBRILLATION
     Route: 048
     Dates: start: 20131119, end: 20140211

REACTIONS (4)
  - Gastrointestinal haemorrhage [Unknown]
  - Haematoma [Unknown]
  - Haemorrhage [Unknown]
  - Haematuria [Unknown]

NARRATIVE: CASE EVENT DATE: 20140204
